FAERS Safety Report 4767854-0 (Version None)
Quarter: 2005Q3

REPORT INFORMATION
  Report Type: 
  Country: None (occurrence: None)
  Receive Date: 20050912
  Receipt Date: 20050830
  Transmission Date: 20060218
  Serious: No
  Sender: FDA-Public Use
  Company Number: S05-USA-04206-01

PATIENT
  Age: 50 Year
  Sex: Female

DRUGS (4)
  1. THYROID TAB [Suspect]
     Indication: HYPOTHYROIDISM
     Dosage: 90 MG QD PO
     Route: 048
  2. CYTOMEL [Suspect]
     Indication: HYPOTHYROIDISM
     Dosage: 25 MCG QD
  3. ESTROGEN [Suspect]
     Indication: HORMONE REPLACEMENT THERAPY
  4. PROGESTERONE [Suspect]
     Indication: HORMONE REPLACEMENT THERAPY

REACTIONS (10)
  - ALOPECIA [None]
  - BRONCHITIS [None]
  - DERMATITIS ALLERGIC [None]
  - EAR INFECTION [None]
  - MIGRAINE [None]
  - MYALGIA [None]
  - PAIN [None]
  - PNEUMONIA [None]
  - REFUSAL OF TREATMENT BY PATIENT [None]
  - SUBCUTANEOUS ABSCESS [None]
